FAERS Safety Report 9199659 (Version 2)
Quarter: 2013Q1

REPORT INFORMATION
  Report Type: Spontaneous
  Country: US (occurrence: US)
  Receive Date: 20130329
  Receipt Date: 20130329
  Transmission Date: 20140127
  Serious: Yes (Other)
  Sender: FDA-Public Use
  Company Number: US-JNJCP-30000153106

PATIENT
  Sex: Male

DRUGS (4)
  1. JOHNSONS BABY POWDER [Suspect]
     Indication: PRODUCT USED FOR UNKNOWN INDICATION
     Route: 055
  2. NO DRUG NAME [Concomitant]
  3. NO DRUG NAME [Concomitant]
  4. NO DRUG NAME [Concomitant]

REACTIONS (2)
  - Accidental exposure to product [Unknown]
  - Lung neoplasm malignant [Unknown]
